FAERS Safety Report 5700928-6 (Version None)
Quarter: 2008Q2

REPORT INFORMATION
  Report Type: 
  Country: None (occurrence: None)
  Receive Date: 20080410
  Receipt Date: 20080407
  Transmission Date: 20081010
  Serious: Yes (Hospitalization)
  Sender: FDA-Public Use
  Company Number: B0513753A

PATIENT
  Age: 11 Year
  Sex: Female

DRUGS (1)
  1. FLIXONASE NASAL SPRAY [Suspect]
     Indication: RHINITIS
     Dosage: 2SPR PER DAY
     Route: 045
     Dates: start: 20080101

REACTIONS (8)
  - CARDIOMEGALY [None]
  - CHEST PAIN [None]
  - DYSPNOEA [None]
  - ELECTROCARDIOGRAM ABNORMAL [None]
  - HEART RATE IRREGULAR [None]
  - PALLOR [None]
  - PALPITATIONS [None]
  - PHARMACEUTICAL PRODUCT COMPLAINT [None]
